FAERS Safety Report 9737258 (Version 1)
Quarter: 2013Q4

REPORT INFORMATION
  Report Type: Spontaneous
  Country: DE (occurrence: DE)
  Receive Date: 20131206
  Receipt Date: 20131206
  Transmission Date: 20140711
  Serious: Yes (Other)
  Sender: FDA-Public Use
  Company Number: GXKR2013DE003754

PATIENT
  Sex: Female

DRUGS (1)
  1. CANDESARTAN - 1 A PHARMA [Suspect]
     Dosage: UNK
     Route: 048
     Dates: start: 201307, end: 201309

REACTIONS (3)
  - Dermatomyositis [Not Recovered/Not Resolved]
  - Myalgia [Not Recovered/Not Resolved]
  - Skin discolouration [Not Recovered/Not Resolved]
